FAERS Safety Report 9012223 (Version 1)
Quarter: 2013Q1

REPORT INFORMATION
  Report Type: Spontaneous
  Country: US (occurrence: US)
  Receive Date: 20130114
  Receipt Date: 20130114
  Transmission Date: 20140127
  Serious: Yes (Other)
  Sender: FDA-Public Use
  Company Number: US-BAYER-2013-004193

PATIENT
  Age: 82 Year
  Sex: Female

DRUGS (1)
  1. CIPRO [Suspect]
     Indication: LOCALISED INFECTION
     Dosage: UNK UNK, BID
     Route: 048
     Dates: start: 20130103

REACTIONS (2)
  - Gingival abscess [Not Recovered/Not Resolved]
  - Toothache [Not Recovered/Not Resolved]
